FAERS Safety Report 7503845-4 (Version None)
Quarter: 2011Q2

REPORT INFORMATION
  Report Type: 
  Country: None (occurrence: None)
  Receive Date: 20110525
  Receipt Date: 20110520
  Transmission Date: 20111010
  Serious: Yes (Hospitalization)
  Sender: FDA-Public Use
  Company Number: US-MERCK-1012USA01901

PATIENT
  Age: 60 Year
  Sex: Female
  Weight: 62 kg

DRUGS (8)
  1. ALENDRONATE SODIUM [Suspect]
     Indication: OSTEOPENIA
     Route: 048
     Dates: start: 20080101, end: 20090401
  2. FOSAMAX [Suspect]
     Route: 048
     Dates: start: 20030901, end: 20080101
  3. FOSAMAX [Suspect]
     Route: 048
     Dates: start: 20030901, end: 20080101
  4. FOSAMAX [Suspect]
     Indication: OSTEOPOROSIS
     Route: 048
     Dates: start: 19970101, end: 20001001
  5. FOSAMAX [Suspect]
     Indication: OSTEOPENIA
     Route: 048
     Dates: start: 19970101, end: 20001001
  6. FOSAMAX [Suspect]
     Route: 048
     Dates: start: 20001001, end: 20071201
  7. FOSAMAX [Suspect]
     Route: 048
     Dates: start: 20001001, end: 20071201
  8. ALENDRONATE SODIUM [Suspect]
     Indication: OSTEOPOROSIS
     Route: 048
     Dates: start: 20080101, end: 20090401

REACTIONS (13)
  - LOW TURNOVER OSTEOPATHY [None]
  - THYROID CANCER [None]
  - INFECTION [None]
  - PUBIS FRACTURE [None]
  - EXCORIATION [None]
  - DENTAL CARIES [None]
  - ACNE [None]
  - GASTROINTESTINAL DISORDER [None]
  - PATELLA FRACTURE [None]
  - PAIN [None]
  - FALL [None]
  - FEMUR FRACTURE [None]
  - SENSITIVITY OF TEETH [None]
